FAERS Safety Report 15839045 (Version 1)
Quarter: 2019Q1

REPORT INFORMATION
  Report Type: Spontaneous
  Country: PT (occurrence: PT)
  Receive Date: 20190117
  Receipt Date: 20190117
  Transmission Date: 20190417
  Serious: Yes (Other)
  Sender: FDA-Public Use
  Company Number: PT-SA-2019SA011041

PATIENT
  Age: 84 Year
  Sex: Female
  Weight: 65 kg

DRUGS (1)
  1. ENOXAPARIN SODIUM. [Suspect]
     Active Substance: ENOXAPARIN SODIUM
     Indication: ATRIAL FIBRILLATION
     Dosage: 60 MG, BID
     Route: 065

REACTIONS (8)
  - Retroperitoneal haematoma [Unknown]
  - Hypotension [Unknown]
  - Haemorrhage [Unknown]
  - Tachycardia [Unknown]
  - Pallor [Unknown]
  - Condition aggravated [Unknown]
  - Abdominal discomfort [Unknown]
  - Haemoglobin decreased [Unknown]
